FAERS Safety Report 8532266-0 (Version None)
Quarter: 2012Q3

REPORT INFORMATION
  Report Type: 
  Country: None (occurrence: None)
  Receive Date: 20120724
  Receipt Date: 20120711
  Transmission Date: 20120928
  Serious: Yes (Hospitalization)
  Sender: FDA-Public Use
  Company Number: AR-AMGEN-ARGSP2012044185

PATIENT
  Age: 63 Year
  Sex: Female

DRUGS (8)
  1. ENBREL [Suspect]
     Indication: RHEUMATOID ARTHRITIS
     Dosage: 50 MG, WEEKLY
     Route: 058
     Dates: start: 20060815, end: 20120101
  2. ACETYLSALICYLIC ACID SRT [Concomitant]
     Dosage: UNK
  3. METICORTEN [Concomitant]
     Dosage: UNK
  4. IBUPROFEN [Concomitant]
     Dosage: UNK
  5. INSULIN [Concomitant]
     Dosage: UNK
  6. AMLODIPINE [Concomitant]
     Dosage: UNK
  7. ATENOLOL [Concomitant]
     Dosage: UNK
  8. METHOTREXATE [Concomitant]
     Dosage: UNK

REACTIONS (2)
  - HYPERGLYCAEMIA [None]
  - ASTHMA [None]
